FAERS Safety Report 9602403 (Version 2)
Quarter: 2013Q4

REPORT INFORMATION
  Report Type: Spontaneous
  Country: JP (occurrence: JP)
  Receive Date: 20131007
  Receipt Date: 20131029
  Transmission Date: 20140711
  Serious: Yes (Hospitalization)
  Sender: FDA-Public Use
  Company Number: JP-PFIZER INC-2013282726

PATIENT
  Sex: 0

DRUGS (1)
  1. LYRICA [Suspect]
     Indication: HYPOAESTHESIA
     Dosage: 150 MG, UNK

REACTIONS (3)
  - Somnolence [Recovering/Resolving]
  - Delirium [Recovering/Resolving]
  - Prerenal failure [Recovering/Resolving]
